FAERS Safety Report 5592873-4 (Version None)
Quarter: 2008Q1

REPORT INFORMATION
  Report Type: 
  Country: None (occurrence: None)
  Receive Date: 20080115
  Receipt Date: 20080115
  Transmission Date: 20080703
  Serious: No
  Sender: FDA-Public Use
  Company Number: None

PATIENT
  Age: 70 Year
  Sex: Male
  Weight: 72.5755 kg

DRUGS (1)
  1. COMTAN [Suspect]
     Dosage: 200 MG QID PO
     Route: 048
     Dates: start: 20080109, end: 20080110

REACTIONS (1)
  - RHABDOMYOLYSIS [None]
